FAERS Safety Report 8756366 (Version 1)
Quarter: 2012Q4

REPORT INFORMATION
  Report Type: Report from Study
  Country: US (occurrence: US)
  Receive Date: 20120828
  Receipt Date: 20120828
  Transmission Date: 20130627
  Serious: Yes (Other)
  Sender: FDA-Public Use
  Company Number: US-JNJFOC-20120809609

PATIENT
  Age: 50 None
  Sex: Female
  Weight: 106.6 kg

DRUGS (13)
  1. REMICADE [Suspect]
     Indication: RHEUMATOID ARTHRITIS
     Route: 042
     Dates: start: 20120814
  2. REMICADE [Suspect]
     Indication: RHEUMATOID ARTHRITIS
     Route: 042
     Dates: start: 201207
  3. MELOXICAM [Interacting]
     Indication: ANTIINFLAMMATORY THERAPY
     Route: 048
  4. METHOTREXATE [Concomitant]
     Indication: RHEUMATOID ARTHRITIS
     Dosage: 15 mg
     Route: 048
  5. VITAMIN D [Concomitant]
     Indication: VITAMIN SUPPLEMENTATION
     Route: 048
  6. STRATTERA [Concomitant]
     Indication: ATTENTION DEFICIT/HYPERACTIVITY DISORDER
     Route: 048
  7. ZOLOFT [Concomitant]
     Indication: DEPRESSION
     Route: 048
  8. ATENOLOL [Concomitant]
     Indication: ANXIETY
     Route: 048
  9. DEXILANT [Concomitant]
     Indication: GASTRIC DISORDER
     Route: 048
  10. MAGNESIUM [Concomitant]
     Indication: MUSCLE SPASMS
     Route: 048
  11. TRAMADOL [Concomitant]
     Indication: PAIN
     Route: 048
  12. METAXALONE [Concomitant]
     Dosage: 1-2 tablets daily
     Route: 048
  13. FOLIC ACID [Concomitant]
     Indication: VITAMIN SUPPLEMENTATION
     Route: 048

REACTIONS (6)
  - Drug interaction [Unknown]
  - Metrorrhagia [Recovered/Resolved]
  - Hypersomnia [Recovered/Resolved]
  - Fatigue [Recovering/Resolving]
  - Drug ineffective [Not Recovered/Not Resolved]
  - Headache [Recovered/Resolved]
